FAERS Safety Report 15050280 (Version 1)
Quarter: 2018Q2

REPORT INFORMATION
  Report Type: Spontaneous
  Country: AU (occurrence: AU)
  Receive Date: 20180622
  Receipt Date: 20180622
  Transmission Date: 20180711
  Serious: Yes (Hospitalization, Other)
  Sender: FDA-Public Use
  Company Number: AU-009507513-2005-10-0628

PATIENT
  Age: 54 Year
  Sex: Female

DRUGS (3)
  1. DEXAMETHASONE. [Concomitant]
     Active Substance: DEXAMETHASONE
  2. THERAPEUTIC RADIOPHARMACEUTICAL (UNSPECIFIED) [Suspect]
     Active Substance: UNSPECIFIED INGREDIENT
     Indication: GLIOBLASTOMA
     Dosage: DOSE: UNKNOWN, DURATION: 6 WEEK(S)
     Route: 050
     Dates: start: 200508
  3. TEMODAL [Suspect]
     Active Substance: TEMOZOLOMIDE
     Indication: GLIOBLASTOMA
     Dosage: 150 MG/M2, UNK
     Route: 048

REACTIONS (6)
  - Febrile neutropenia [Unknown]
  - Haemoglobin decreased [Unknown]
  - Bone marrow failure [Unknown]
  - Neutrophil count decreased [Unknown]
  - Sepsis [Unknown]
  - Platelet count decreased [Unknown]

NARRATIVE: CASE EVENT DATE: 200508
